FAERS Safety Report 22102473 (Version 1)
Quarter: 2023Q1

REPORT INFORMATION
  Report Type: Spontaneous
  Country: US (occurrence: US)
  Receive Date: 20230316
  Receipt Date: 20230316
  Transmission Date: 20230418
  Serious: Yes (Death, Life-Threatening, Other)
  Sender: FDA-Public Use
  Company Number: US-PFIZER INC-PV202300048229

PATIENT
  Age: 60 Year
  Sex: Male

DRUGS (1)
  1. VANCOMYCIN HYDROCHLORIDE [Suspect]
     Active Substance: VANCOMYCIN HYDROCHLORIDE
     Indication: Evidence based treatment
     Dosage: UNK

REACTIONS (3)
  - Drug ineffective [Fatal]
  - Mycobacterial infection [Fatal]
  - Cardiac arrest [Fatal]
